FAERS Safety Report 7653496-6 (Version None)
Quarter: 2011Q3

REPORT INFORMATION
  Report Type: 
  Country: None (occurrence: None)
  Receive Date: 20110802
  Receipt Date: 20110802
  Transmission Date: 20111222
  Serious: Yes (Disabling, Other)
  Sender: FDA-Public Use
  Company Number: None

PATIENT
  Age: 39 Year
  Sex: Female
  Weight: 70.3075 kg

DRUGS (2)
  1. EFFEXOR [Suspect]
     Dosage: 40 MG 1-NIGHT
  2. SEROQUEL XR [Suspect]
     Indication: BIPOLAR I DISORDER
     Dosage: 600 MG 1 - NIGHT
     Dates: start: 20060101, end: 20100101

REACTIONS (2)
  - PANCREATIC DISORDER [None]
  - LIVER DISORDER [None]
